FAERS Safety Report 8456753-9 (Version None)
Quarter: 2012Q2

REPORT INFORMATION
  Report Type: 
  Country: None (occurrence: None)
  Receive Date: 20120323
  Receipt Date: 20111004
  Transmission Date: 20120825
  Serious: Yes (Other)
  Sender: FDA-Public Use
  Company Number: 163-21880-11091851

PATIENT
  Age: 81 Year
  Sex: Male

DRUGS (4)
  1. REVLIMID [Suspect]
     Indication: MULTIPLE MYELOMA
     Dosage: 15 MG, DAILY X21 DAYS ON, THEN 7 DAYS OFF, PO
     Route: 048
     Dates: start: 20110810, end: 20110903
  2. PLAVIX [Concomitant]
  3. DEXAMETHASONE [Concomitant]
  4. REVLIMID [Suspect]
     Dosage: 10 MG, DAILY X14  DAYS 7 DAYS OFF, PO
     Route: 048
     Dates: start: 20110915

REACTIONS (2)
  - RASH [None]
  - WHITE BLOOD CELL COUNT DECREASED [None]
